FAERS Safety Report 15604484 (Version 1)
Quarter: 2018Q4

REPORT INFORMATION
  Report Type: Report from Study
  Country: UA (occurrence: UA)
  Receive Date: 20181110
  Receipt Date: 20181110
  Transmission Date: 20190205
  Serious: Yes (Other)
  Sender: FDA-Public Use
  Company Number: PHHY2018UA149169

PATIENT
  Age: 75 Year
  Sex: Female

DRUGS (2)
  1. SIMBRINZA [Suspect]
     Active Substance: BRIMONIDINE TARTRATE\BRINZOLAMIDE
     Indication: GLAUCOMA
     Dosage: UNK
     Route: 057
  2. PILOCARPINE. [Concomitant]
     Active Substance: PILOCARPINE
     Indication: PRODUCT USED FOR UNKNOWN INDICATION
     Route: 065

REACTIONS (3)
  - Cardiac discomfort [Recovering/Resolving]
  - Dizziness [Recovering/Resolving]
  - Asthenia [Recovering/Resolving]
